FAERS Safety Report 4345299-5 (Version None)
Quarter: 2004Q2

REPORT INFORMATION
  Report Type: 
  Country: None (occurrence: None)
  Receive Date: 20040423
  Receipt Date: 20040422
  Transmission Date: 20050107
  Serious: Yes (Hospitalization)
  Sender: FDA-Public Use
  Company Number: US-GLAXOSMITHKLINE-A0508058A

PATIENT
  Sex: Male

DRUGS (4)
  1. LEXIVA [Suspect]
     Indication: HIV INFECTION
     Dosage: 700MG TWICE PER DAY
     Route: 048
  2. TENOFOVIR [Concomitant]
  3. VIDEX [Concomitant]
  4. RITONAVIR [Concomitant]
     Dosage: 100MG TWICE PER DAY

REACTIONS (2)
  - JAUNDICE [None]
  - PYREXIA [None]
